FAERS Safety Report 6804632-2 (Version None)
Quarter: 2010Q2

REPORT INFORMATION
  Report Type: 
  Country: None (occurrence: None)
  Receive Date: 20100628
  Receipt Date: 20100628
  Transmission Date: 20101027
  Serious: Yes (Life-Threatening)
  Sender: FDA-Public Use
  Company Number: None

PATIENT
  Sex: Male

DRUGS (1)
  1. IMMUNE GLOBULIN INTRAVENOUS (HUMAN) [Suspect]
     Indication: STEVENS-JOHNSON SYNDROME
     Dosage: 50 ML/H IV DRIP
     Route: 041

REACTIONS (6)
  - CHILLS [None]
  - DYSPNOEA [None]
  - FEELING COLD [None]
  - INFUSION RELATED REACTION [None]
  - SHOCK [None]
  - TREMOR [None]
